FAERS Safety Report 12212278 (Version 1)
Quarter: 2016Q1

REPORT INFORMATION
  Report Type: Spontaneous
  Country: US (occurrence: US)
  Receive Date: 20160325
  Receipt Date: 20160325
  Transmission Date: 20160526
  Serious: No
  Sender: FDA-Public Use
  Company Number: US-DEP_02494_2015

PATIENT

DRUGS (2)
  1. GRALISE [Suspect]
     Active Substance: GABAPENTIN
     Indication: PRODUCT USED FOR UNKNOWN INDICATION
     Dosage: TITRATED UP TO 600 MG
  2. GRALISE [Suspect]
     Active Substance: GABAPENTIN
     Dosage: TITRATED DOWN TO 300 MG, THEN DISCONTINUED

REACTIONS (1)
  - Rash generalised [Recovered/Resolved]
